FAERS Safety Report 8919853 (Version 1)
Quarter: 2012Q4

REPORT INFORMATION
  Report Type: 
  Country: US (occurrence: US)
  Receive Date: 20121121
  Receipt Date: 20121121
  Transmission Date: 20130627
  Serious: Yes (Life-Threatening, Hospitalization, Other)
  Sender: FDA-Public Use
  Company Number: US-BAYER-201040576NA

PATIENT
  Age: 62 Year
  Sex: Female

DRUGS (5)
  1. BETASERON [Suspect]
     Indication: RELAPSING-REMITTING MULTIPLE SCLEROSIS
     Route: 058
     Dates: start: 20000203, end: 20091221
  2. BETASERON [Suspect]
     Indication: RELAPSING-REMITTING MULTIPLE SCLEROSIS
     Dosage: 4 miu, QOD
     Route: 058
     Dates: start: 20120904, end: 20120920
  3. FAMPRIDINE [Concomitant]
  4. TYLENOL [Concomitant]
     Indication: PREMEDICATION
  5. ADVIL [Concomitant]
     Indication: PREMEDICATION

REACTIONS (4)
  - Injection site abscess [Recovered/Resolved with Sequelae]
  - Influenza like illness [None]
  - Vomiting [None]
  - Nausea [None]
